FAERS Safety Report 14211945 (Version 1)
Quarter: 2017Q4

REPORT INFORMATION
  Report Type: Report from Study
  Country: US (occurrence: US)
  Receive Date: 20171122
  Receipt Date: 20171122
  Transmission Date: 20180321
  Serious: Yes (Hospitalization)
  Sender: FDA-Public Use
  Company Number: US-BAYER-2017-210992

PATIENT
  Age: 72 Year
  Sex: Female

DRUGS (1)
  1. STIVARGA [Suspect]
     Active Substance: REGORAFENIB
     Indication: COLON CANCER
     Dosage: DAILY DOSE 120 MG
     Route: 048
     Dates: start: 20171009, end: 20171020

REACTIONS (9)
  - Nausea [Recovering/Resolving]
  - Weight increased [Not Recovered/Not Resolved]
  - Candida infection [Recovered/Resolved]
  - Musculoskeletal chest pain [None]
  - Stomatitis [Recovered/Resolved]
  - Sinusitis [Not Recovered/Not Resolved]
  - Paranasal sinus hypersecretion [Not Recovered/Not Resolved]
  - Ill-defined disorder [None]
  - Off label use [None]

NARRATIVE: CASE EVENT DATE: 2017
